FAERS Safety Report 6704890-9 (Version None)
Quarter: 2010Q2

REPORT INFORMATION
  Report Type: 
  Country: None (occurrence: None)
  Receive Date: 20100430
  Receipt Date: 20100108
  Transmission Date: 20101027
  Serious: No
  Sender: FDA-Public Use
  Company Number: US-ASTRAZENECA-2009SE29737

PATIENT
  Age: 790 Month
  Sex: Female

DRUGS (4)
  1. NEXIUM [Suspect]
     Indication: ULCER
     Route: 048
     Dates: start: 20091101
  2. VITAMINS [Concomitant]
  3. XANAX [Concomitant]
  4. TELTEKTURNA [Concomitant]
     Indication: BLOOD PRESSURE

REACTIONS (4)
  - CHOLELITHIASIS [None]
  - DRUG HYPERSENSITIVITY [None]
  - ROSACEA [None]
  - URTICARIA [None]
